FAERS Safety Report 7640685-X (Version None)
Quarter: 2011Q3

REPORT INFORMATION
  Report Type: 
  Country: None (occurrence: None)
  Receive Date: 20110728
  Receipt Date: 20110714
  Transmission Date: 20111222
  Serious: Yes (Other)
  Sender: FDA-Public Use
  Company Number: US-UCBSA-037246

PATIENT
  Sex: Female
  Weight: 116.12 kg

DRUGS (3)
  1. BENECAR/HCT [Concomitant]
     Indication: HYPERTENSION
     Dosage: AS USED : 40/25 MG
     Route: 048
     Dates: start: 20060101
  2. VIMPAT [Suspect]
     Indication: CONVULSION
     Dosage: STARTED ON MAR/2010 ON AN UNKNOWN DOSE: TITRATED UP;
     Route: 048
  3. KEPPRA [Suspect]
     Dates: start: 20090301

REACTIONS (2)
  - TONGUE INJURY [None]
  - CONVULSION [None]
